FAERS Safety Report 4503911-1 (Version None)
Quarter: 2004Q4

REPORT INFORMATION
  Report Type: 
  Country: None (occurrence: None)
  Receive Date: 20041115
  Receipt Date: 20041103
  Transmission Date: 20050328
  Serious: Yes (Death, Hospitalization)
  Sender: FDA-Public Use
  Company Number: F03200400025

PATIENT
  Age: 36 Year
  Sex: Male

DRUGS (11)
  1. ELOXATIN [Suspect]
     Indication: COLORECTAL CANCER
     Dosage: 154 MG OTHER - INTRAVENOUS NOS
     Route: 042
     Dates: start: 20040301, end: 20040301
  2. FLUOROURACIL [Suspect]
     Indication: COLORECTAL CANCER
     Dosage: INTRAVENOUS NOS
     Route: 042
     Dates: start: 20040303, end: 20040303
  3. LEUCOVORIN - SOLUTION [Suspect]
     Indication: COLORECTAL CANCER
     Dosage: INTRAVENOUS NOS
     Route: 042
     Dates: start: 20040302, end: 20040302
  4. CLONIDINE [Concomitant]
  5. HEPARIN-FRACTION, SODIUM SALT [Concomitant]
  6. EPOETIN ALFA [Concomitant]
  7. PROMETHAZINE HCL [Concomitant]
  8. ONDANSETRON HCL [Concomitant]
  9. LORAZEPAM [Concomitant]
  10. OXYCONTIN [Concomitant]
  11. MEGESTROL ACETATE [Concomitant]

REACTIONS (26)
  - ABDOMINAL PAIN [None]
  - ABDOMINAL TENDERNESS [None]
  - ANURIA [None]
  - BLOOD SODIUM DECREASED [None]
  - BODY TEMPERATURE INCREASED [None]
  - CARDIO-RESPIRATORY ARREST [None]
  - CATHETER RELATED INFECTION [None]
  - CONSTIPATION [None]
  - DEHYDRATION [None]
  - GASTRIC ULCER [None]
  - GASTROINTESTINAL HAEMORRHAGE [None]
  - GASTROINTESTINAL OBSTRUCTION [None]
  - HAEMATOCHEZIA [None]
  - HAEMOGLOBIN DECREASED [None]
  - HYPOTENSION [None]
  - MYOCARDIAL INFARCTION [None]
  - NAUSEA [None]
  - PALPITATIONS [None]
  - PULMONARY OEDEMA [None]
  - RENAL FAILURE ACUTE [None]
  - RESPIRATORY DISTRESS [None]
  - RESPIRATORY RATE INCREASED [None]
  - SEPTIC SHOCK [None]
  - STAPHYLOCOCCAL SEPSIS [None]
  - TACHYCARDIA [None]
  - VOMITING [None]
